FAERS Safety Report 6894431-8 (Version None)
Quarter: 2010Q3

REPORT INFORMATION
  Report Type: 
  Country: None (occurrence: None)
  Receive Date: 20100802
  Receipt Date: 20100721
  Transmission Date: 20110219
  Serious: Yes (Hospitalization)
  Sender: FDA-Public Use
  Company Number: US-WYE-H16358810

PATIENT
  Sex: Female
  Weight: 99.88 kg

DRUGS (9)
  1. PRISTIQ [Suspect]
     Indication: DEPRESSION
     Route: 048
     Dates: start: 20100101
  2. NIFEDIPINE [Concomitant]
     Indication: HYPERTENSION
     Dosage: 30 MG
  3. GEMFIBROZIL [Concomitant]
     Dosage: 600 MG
  4. QUETIAPINE [Concomitant]
  5. ESTRADIOL [Concomitant]
  6. PAXIL [Concomitant]
     Dosage: UNKNOWN
  7. CHERATUSSIN COUGH [Concomitant]
     Dosage: UNKNOWN
  8. XANAX [Suspect]
     Indication: DEPRESSION
  9. ENALAPRIL [Concomitant]

REACTIONS (4)
  - ABNORMAL BEHAVIOUR [None]
  - HOSTILITY [None]
  - INFECTION [None]
  - VIOLENCE-RELATED SYMPTOM [None]
